FAERS Safety Report 4300407-7 (Version None)
Quarter: 2004Q1

REPORT INFORMATION
  Report Type: 
  Country: None (occurrence: None)
  Receive Date: 20040218
  Receipt Date: 20040218
  Transmission Date: 20041129
  Serious: Yes (Hospitalization)
  Sender: FDA-Public Use
  Company Number: None

PATIENT
  Age: 62 Year
  Sex: Male
  Weight: 117.3 kg

DRUGS (10)
  1. NAPROXEN [Suspect]
  2. INDOMETHACIN [Concomitant]
  3. ALLOPURINOL [Concomitant]
  4. FA [Concomitant]
  5. FOSINOPRIL SODIUM [Concomitant]
  6. GLIPIZIDE [Concomitant]
  7. M.V.I. [Concomitant]
  8. PERCOCET [Concomitant]
  9. THIAMINE [Concomitant]
  10. PSEUDO/TRIPROLIDINE [Concomitant]

REACTIONS (5)
  - ASTHENIA [None]
  - DIZZINESS [None]
  - DYSPNOEA [None]
  - FAECES DISCOLOURED [None]
  - MELAENA [None]
